FAERS Safety Report 15592949 (Version 1)
Quarter: 2018Q4

REPORT INFORMATION
  Report Type: Spontaneous
  Country: US (occurrence: US)
  Receive Date: 20181107
  Receipt Date: 20181107
  Transmission Date: 20190205
  Serious: Yes (Life-Threatening, Disabling, Other)
  Sender: FDA-Public Use
  Company Number: None

PATIENT
  Age: 41 Year
  Sex: Female
  Weight: 54 kg

DRUGS (1)
  1. COMPAZINE [Suspect]
     Active Substance: PROCHLORPERAZINE MALEATE
     Indication: PRODUCT USED FOR UNKNOWN INDICATION
     Dosage: ?          OTHER FREQUENCY:ONE TIME IV DOSE;?
     Route: 042
     Dates: start: 20180323, end: 20180323

REACTIONS (21)
  - Nuclear magnetic resonance imaging abnormal [None]
  - Muscular weakness [None]
  - Fatigue [None]
  - Disability [None]
  - Cognitive disorder [None]
  - Dizziness [None]
  - Weight decreased [None]
  - Tachycardia [None]
  - Neck pain [None]
  - Chest discomfort [None]
  - Tardive dyskinesia [None]
  - Panic attack [None]
  - Exercise tolerance decreased [None]
  - Akathisia [None]
  - Tremor [None]
  - Feeling cold [None]
  - Visual impairment [None]
  - Nausea [None]
  - Restlessness [None]
  - Decreased appetite [None]
  - Anaemia [None]

NARRATIVE: CASE EVENT DATE: 19980323
